FAERS Safety Report 17283116 (Version 15)
Quarter: 2021Q2

REPORT INFORMATION
  Report Type: Spontaneous
  Country: US (occurrence: US)
  Receive Date: 20200117
  Receipt Date: 20210422
  Transmission Date: 20210716
  Serious: Yes (Other)
  Sender: FDA-Public Use
  Company Number: US-PFIZER INC-2020022505

PATIENT
  Age: 61 Year
  Sex: Male

DRUGS (1)
  1. BOSULIF [Suspect]
     Active Substance: BOSUTINIB MONOHYDRATE
     Indication: CHRONIC MYELOID LEUKAEMIA
     Dosage: 400 MG, UNK
     Dates: end: 20200323

REACTIONS (16)
  - White blood cell count decreased [Unknown]
  - Loss of personal independence in daily activities [Unknown]
  - Illness [Unknown]
  - Pericardial effusion [Unknown]
  - White blood cell count increased [Recovering/Resolving]
  - Anaemia [Unknown]
  - Diabetes mellitus [Unknown]
  - Hot flush [Unknown]
  - Withdrawal syndrome [Unknown]
  - Fatigue [Unknown]
  - Gangrene [Unknown]
  - Hypoacusis [Unknown]
  - Pulmonary oedema [Unknown]
  - Pneumonia [Unknown]
  - Lethargy [Unknown]
  - Feeling abnormal [Unknown]

NARRATIVE: CASE EVENT DATE: 202001
